FAERS Safety Report 8384365-4 (Version None)
Quarter: 2012Q2

REPORT INFORMATION
  Report Type: 
  Country: None (occurrence: None)
  Receive Date: 20120524
  Receipt Date: 20120515
  Transmission Date: 20120825
  Serious: Yes (Hospitalization)
  Sender: FDA-Public Use
  Company Number: US-ASTRAZENECA-2012SE31442

PATIENT
  Age: 73 Year
  Sex: Female

DRUGS (2)
  1. NEXIUM [Suspect]
     Route: 048
  2. NEXIUM [Suspect]
     Dosage: TWICE DAILY
     Route: 048

REACTIONS (3)
  - GASTRIC HAEMORRHAGE [None]
  - OFF LABEL USE [None]
  - GASTRITIS [None]
